FAERS Safety Report 9297176 (Version 1)
Quarter: 2013Q2

REPORT INFORMATION
  Report Type: Spontaneous
  Country: FR (occurrence: FR)
  Receive Date: 20130520
  Receipt Date: 20130520
  Transmission Date: 20140414
  Serious: Yes (Other)
  Sender: FDA-Public Use
  Company Number: FR-ROCHE-1225249

PATIENT
  Age: 69 Year
  Sex: Male

DRUGS (4)
  1. RIVOTRIL [Suspect]
     Indication: ANXIETY
     Dosage: 10-40 DROPS DAILY
     Route: 048
     Dates: start: 2011
  2. RIVOTRIL [Suspect]
     Indication: SLEEP DISORDER
  3. LAROXYL [Concomitant]
     Indication: DEPRESSION
     Route: 065
  4. DEPAMIDE [Concomitant]
     Indication: DEPRESSION

REACTIONS (1)
  - Autonomic nervous system imbalance [Not Recovered/Not Resolved]
